FAERS Safety Report 20902643 (Version 1)
Quarter: 2022Q2

REPORT INFORMATION
  Report Type: Spontaneous
  Country: CN (occurrence: CN)
  Receive Date: 20220601
  Receipt Date: 20220601
  Transmission Date: 20220720
  Serious: Yes (Death, Other)
  Sender: FDA-Public Use
  Company Number: CN-009507513-2205CHN007736

PATIENT
  Age: 19 Year
  Sex: Female

DRUGS (3)
  1. MONTELUKAST SODIUM [Suspect]
     Active Substance: MONTELUKAST SODIUM
     Dosage: UNK
     Route: 048
     Dates: start: 2022
  2. AMBROXOL [Suspect]
     Active Substance: AMBROXOL
     Dosage: UNK
     Dates: start: 2022
  3. SELEXIPAG [Suspect]
     Active Substance: SELEXIPAG
     Indication: Pulmonary arterial pressure decreased
     Dosage: 0.2 MILLIGRAM, Q12H
     Dates: start: 20220502

REACTIONS (22)
  - Death [Fatal]
  - Cardiac failure [Unknown]
  - Lymphoma [Unknown]
  - Multiple organ dysfunction syndrome [Not Recovered/Not Resolved]
  - Polyserositis [Unknown]
  - Drug-induced liver injury [Unknown]
  - Pneumonia [Unknown]
  - Haemophagocytic lymphohistiocytosis [Unknown]
  - Pulmonary valve incompetence [Unknown]
  - Thrombocytopenia [Unknown]
  - Cholecystitis chronic [Unknown]
  - Demyelination [Unknown]
  - Pulmonary embolism [Unknown]
  - Skin lesion [Unknown]
  - Hepatosplenomegaly [Unknown]
  - Hypoproteinaemia [Unknown]
  - Sinus tachycardia [Unknown]
  - Ovarian failure [Unknown]
  - Lymphadenopathy [Unknown]
  - Diarrhoea [Unknown]
  - Rash [Unknown]
  - Abdominal distension [Unknown]

NARRATIVE: CASE EVENT DATE: 20220101
